FAERS Safety Report 4994890-1 (Version None)
Quarter: 2006Q2

REPORT INFORMATION
  Report Type: 
  Country: None (occurrence: None)
  Receive Date: 20060508
  Receipt Date: 20060420
  Transmission Date: 20061013
  Serious: Yes (Hospitalization)
  Sender: FDA-Public Use
  Company Number: PHBS2006BE05780

PATIENT
  Age: 10 Year
  Sex: Female
  Weight: 33 kg

DRUGS (4)
  1. SERETIDE EVOHALER [Concomitant]
     Indication: ASTHMA
     Dosage: 25/125, BID
     Dates: start: 20031210
  2. ELIDEL [Suspect]
     Indication: DERMATITIS ATOPIC
     Dosage: UNK, QD (ONE 15 G TUBE)
     Route: 061
     Dates: start: 20040825, end: 20040925
  3. MONTELUKAST [Concomitant]
     Indication: ASTHMA
     Dosage: 5 MG, QD
     Route: 048
  4. BETAMETHASONE [Concomitant]
     Dosage: 1 MG, BID
     Dates: start: 20031201, end: 20031210

REACTIONS (3)
  - HODGKIN'S DISEASE LYMPHOCYTE PREDOMINANCE TYPE STAGE III [None]
  - LYMPHADENOPATHY [None]
  - METASTASIS [None]
